FAERS Safety Report 8326879-9 (Version None)
Quarter: 2012Q2

REPORT INFORMATION
  Report Type: 
  Country: None (occurrence: None)
  Receive Date: 20120501
  Receipt Date: 20120416
  Transmission Date: 20120825
  Serious: Yes (Hospitalization, Other)
  Sender: FDA-Public Use
  Company Number: NL-WATSON-2012-06825

PATIENT
  Age: 77 Year
  Sex: Female

DRUGS (1)
  1. PREDNISONE TAB [Suspect]
     Indication: MYCOSIS FUNGOIDES
     Dosage: 5 MG, BID
     Route: 048

REACTIONS (4)
  - DISSEMINATED CRYPTOCOCCOSIS [None]
  - ENCEPHALITIS MENINGOCOCCAL [None]
  - CRYPTOCOCCAL FUNGAEMIA [None]
  - SUBCUTANEOUS ABSCESS [None]
